FAERS Safety Report 20020341 (Version 1)
Quarter: 2021Q4

REPORT INFORMATION
  Report Type: Report from Study
  Country: CO (occurrence: CO)
  Receive Date: 20211101
  Receipt Date: 20211101
  Transmission Date: 20220303
  Serious: Yes (Other)
  Sender: FDA-Public Use
  Company Number: CO-EYEVANCE PHARMACEUTICALS-2021EYE00307

PATIENT
  Age: 63 Year
  Sex: Female
  Weight: 67 kg

DRUGS (7)
  1. NATACYN [Suspect]
     Active Substance: NATAMYCIN
     Indication: Eye infection fungal
     Dosage: 3 DROP, EVERY 3 HOURS
     Route: 047
     Dates: start: 202108, end: 202108
  2. COSENTYX [Suspect]
     Active Substance: SECUKINUMAB
     Indication: Psoriasis
     Dosage: 300 MG, 1X/MONTH (ONE YEAR AND A HALF AGO)
     Route: 058
     Dates: start: 2019, end: 202107
  3. COSENTYX [Suspect]
     Active Substance: SECUKINUMAB
     Dosage: 300 MG, 1X/MONTH
     Route: 058
     Dates: start: 20210806
  4. COSENTYX [Suspect]
     Active Substance: SECUKINUMAB
     Dosage: 300 MG, 1X/MONTH
     Route: 058
  5. COSENTYX [Suspect]
     Active Substance: SECUKINUMAB
     Dosage: 300 MG, 1X/MONTH
     Route: 058
  6. COSENTYX [Suspect]
     Active Substance: SECUKINUMAB
     Indication: Psoriasis
  7. VORICONAZOLE [Suspect]
     Active Substance: VORICONAZOLE
     Indication: Eye infection fungal
     Dosage: EVERY HOUR
     Dates: start: 202108

REACTIONS (17)
  - Ocular toxicity [Unknown]
  - Eye pain [Not Recovered/Not Resolved]
  - Ulcerative keratitis [Unknown]
  - Asthenopia [Unknown]
  - Acanthamoeba keratitis [Not Recovered/Not Resolved]
  - Eye infection fungal [Unknown]
  - Ocular discomfort [Unknown]
  - Eye discharge [Unknown]
  - Inflammation [Unknown]
  - Lacrimation increased [Unknown]
  - Photophobia [Unknown]
  - Eye inflammation [Unknown]
  - Ocular hyperaemia [Unknown]
  - Eye irritation [Unknown]
  - Headache [Unknown]
  - Facial pain [Unknown]
  - Eyelid ptosis [Unknown]

NARRATIVE: CASE EVENT DATE: 20210501
